FAERS Safety Report 4299571-8 (Version None)
Quarter: 2004Q1

REPORT INFORMATION
  Report Type: 
  Country: None (occurrence: None)
  Receive Date: 20040217
  Receipt Date: 20040209
  Transmission Date: 20041129
  Serious: Yes (Hospitalization)
  Sender: FDA-Public Use
  Company Number: 2004CG00030

PATIENT
  Age: 86 Year
  Sex: Male

DRUGS (16)
  1. MOPRAL [Suspect]
     Dates: start: 20031107
  2. PREVISCAN [Suspect]
     Dates: start: 20031107, end: 20031113
  3. COVERSYL [Suspect]
     Dates: start: 20031014, end: 20031118
  4. CODOLIPRANE [Suspect]
     Dates: end: 20031115
  5. AMLOR [Suspect]
     Dates: start: 20031102
  6. ALDALIX [Suspect]
     Dates: start: 20031025, end: 20031115
  7. XATRAL [Concomitant]
  8. FONZYLANE [Concomitant]
  9. ASPEGIC 325 [Concomitant]
  10. AMAREL [Concomitant]
  11. NOVONORM [Concomitant]
  12. INSULIN [Concomitant]
  13. VIOXX [Concomitant]
  14. BENERVA [Concomitant]
  15. BECILAN [Concomitant]
  16. NITROGLYCERIN [Concomitant]

REACTIONS (5)
  - BLOOD AMYLASE INCREASED [None]
  - HEPATIC STEATOSIS [None]
  - LIPASE INCREASED [None]
  - RASH GENERALISED [None]
  - RASH MACULO-PAPULAR [None]
